FAERS Safety Report 6407735-X (Version None)
Quarter: 2009Q4

REPORT INFORMATION
  Report Type: 
  Country: None (occurrence: None)
  Receive Date: 20091015
  Receipt Date: 20091002
  Transmission Date: 20100525
  Serious: Yes (Hospitalization)
  Sender: FDA-Public Use
  Company Number: 6054943

PATIENT
  Age: 68 Year
  Sex: Female

DRUGS (6)
  1. EUTIROX (25) (LEVOTHYROXINE SODIUM) [Suspect]
     Indication: DRUG USE FOR UNKNOWN INDICATION
     Dosage: (25 MG) ORAL
     Route: 048
     Dates: start: 20070101
  2. ACENOCUMAROL [Concomitant]
  3. DIGOXIN [Concomitant]
  4. OMEPRAZOLE [Concomitant]
  5. PROZAC 200 [Concomitant]
  6. ZYLORIC 100 [Concomitant]

REACTIONS (5)
  - ANGIODYSPLASIA [None]
  - DRUG INTERACTION [None]
  - INTERNATIONAL NORMALISED RATIO INCREASED [None]
  - PROTHROMBIN TIME PROLONGED [None]
  - RECTAL HAEMORRHAGE [None]
